FAERS Safety Report 14967415 (Version 1)
Quarter: 2018Q2

REPORT INFORMATION
  Report Type: Spontaneous
  Country: US (occurrence: US)
  Receive Date: 20180604
  Receipt Date: 20180604
  Transmission Date: 20180711
  Serious: No
  Sender: FDA-Public Use
  Company Number: US-009507513-1805USA014693

PATIENT
  Sex: Male

DRUGS (7)
  1. VITAMINS (UNSPECIFIED) [Concomitant]
     Active Substance: VITAMINS
  2. METFORMIN [Concomitant]
     Active Substance: METFORMIN HYDROCHLORIDE
  3. METOPROLOL. [Concomitant]
     Active Substance: METOPROLOL
  4. INTRON A [Suspect]
     Active Substance: INTERFERON ALFA-2B
     Indication: NON-HODGKIN^S LYMPHOMA
     Dosage: 3ML, MDV, 1 MILLION IU (0.17 ML), BIW
     Route: 058
     Dates: start: 20160606
  5. JANUVIA [Concomitant]
     Active Substance: SITAGLIPTIN PHOSPHATE
  6. WARFARIN [Concomitant]
     Active Substance: WARFARIN
  7. DILTIAZEM HYDROCHLORIDE. [Concomitant]
     Active Substance: DILTIAZEM HYDROCHLORIDE

REACTIONS (1)
  - Fatigue [Unknown]
